FAERS Safety Report 9115252 (Version 2)
Quarter: 2013Q2

REPORT INFORMATION
  Report Type: Spontaneous
  Country: US (occurrence: US)
  Receive Date: 20130225
  Receipt Date: 20130430
  Transmission Date: 20140414
  Serious: Yes (Death)
  Sender: FDA-Public Use
  Company Number: US-ASTELLAS-2011US000961

PATIENT
  Age: 55 Year
  Sex: Male
  Weight: 75 kg

DRUGS (8)
  1. PROGRAF [Suspect]
     Indication: LIVER TRANSPLANT
     Dosage: 0.5 MG, BID
     Route: 048
     Dates: start: 20080111, end: 20120711
  2. ATENOLOL [Concomitant]
     Indication: PRODUCT USED FOR UNKNOWN INDICATION
     Dosage: 25 MG, UID/QD
     Route: 048
  3. GABAPENTIN [Concomitant]
     Indication: PRODUCT USED FOR UNKNOWN INDICATION
     Dosage: 300 MG, BID
     Route: 048
  4. SIMVASTATIN [Concomitant]
     Indication: PRODUCT USED FOR UNKNOWN INDICATION
     Dosage: 40 MG, UID/QD
     Route: 048
  5. AMBIEN [Concomitant]
     Indication: PRODUCT USED FOR UNKNOWN INDICATION
     Dosage: 5 MG, UID/QD
     Route: 048
  6. LORAZEPAM [Concomitant]
     Indication: PRODUCT USED FOR UNKNOWN INDICATION
     Dosage: 1 MG, TID
     Route: 048
  7. PROMETHAZINE [Concomitant]
     Indication: PRODUCT USED FOR UNKNOWN INDICATION
     Dosage: 25 MG, QID
     Route: 048
  8. LANSOPRAZOLE [Concomitant]
     Indication: PRODUCT USED FOR UNKNOWN INDICATION
     Dosage: 30 MG, UID/QD
     Route: 048

REACTIONS (1)
  - Hepatocellular carcinoma [Fatal]
